FAERS Safety Report 10394547 (Version 4)
Quarter: 2015Q1

REPORT INFORMATION
  Report Type: Report from Study
  Country: US (occurrence: JP)
  Receive Date: 20140820
  Receipt Date: 20150227
  Transmission Date: 20150720
  Serious: Yes (Other)
  Sender: FDA-Public Use
  Company Number: JP-009507513-1408JPN009768

PATIENT
  Age: 65 Year
  Sex: Female
  Weight: 65 kg

DRUGS (12)
  1. REBETOL [Suspect]
     Active Substance: RIBAVIRIN
     Dosage: 400 MG, QD
     Route: 048
     Dates: start: 20140522
  2. SIMEPREVIR [Suspect]
     Active Substance: SIMEPREVIR
     Indication: CHRONIC HEPATITIS C
     Dosage: 100 MG, QD
     Route: 048
     Dates: start: 20140410, end: 20140702
  3. REBETOL [Suspect]
     Active Substance: RIBAVIRIN
     Indication: CHRONIC HEPATITIS C
     Dosage: 600 MG, QD
     Route: 048
     Dates: start: 20140410, end: 20140514
  4. PEGINTRON [Suspect]
     Active Substance: PEGINTERFERON ALFA-2B
     Dosage: 50 MICROGRAM, QW
     Route: 058
     Dates: start: 20140417, end: 20140417
  5. REBETOL [Suspect]
     Active Substance: RIBAVIRIN
     Dosage: 200 OR 400 MG ALTERNATELY GIVEN PER DAY
     Route: 048
     Dates: start: 20140709, end: 20140716
  6. PEGINTRON [Suspect]
     Active Substance: PEGINTERFERON ALFA-2B
     Dosage: 40 MICROGRAM, QW
     Route: 058
     Dates: start: 20140501, end: 20140507
  7. REBETOL [Suspect]
     Active Substance: RIBAVIRIN
     Dosage: 400 OR 600 MG ALTERNATELY GIVEN PER DAY
     Route: 048
     Dates: start: 20140515, end: 20140521
  8. REBETOL [Suspect]
     Active Substance: RIBAVIRIN
     Dosage: 200 OR 400 MG ALTERNATELY GIVEN PER DAY
     Route: 048
     Dates: start: 20140724, end: 20140822
  9. PEGINTRON [Suspect]
     Active Substance: PEGINTERFERON ALFA-2B
     Dosage: 80 MICROGRAM, QW
     Route: 058
     Dates: start: 20140424, end: 20140424
  10. PEGINTRON [Suspect]
     Active Substance: PEGINTERFERON ALFA-2B
     Dosage: 80 MICROGRAM, QW
     Route: 058
     Dates: start: 20140515
  11. REBETOL [Suspect]
     Active Substance: RIBAVIRIN
     Dosage: 400 MG, QD
     Route: 048
     Dates: start: 20140823
  12. PEGINTRON [Suspect]
     Active Substance: PEGINTERFERON ALFA-2B
     Indication: CHRONIC HEPATITIS C
     Dosage: 80 MICROGRAM, QW
     Route: 058
     Dates: start: 20140410, end: 20140410

REACTIONS (6)
  - Insomnia [Recovering/Resolving]
  - Anaemia [Not Recovered/Not Resolved]
  - Neutrophil count decreased [Not Recovered/Not Resolved]
  - Back pain [Not Recovered/Not Resolved]
  - Eczema [Not Recovered/Not Resolved]
  - Keratitis [Recovering/Resolving]

NARRATIVE: CASE EVENT DATE: 20140410
